FAERS Safety Report 13020356 (Version 1)
Quarter: 2016Q4

REPORT INFORMATION
  Report Type: Spontaneous
  Country: FR (occurrence: FR)
  Receive Date: 20161212
  Receipt Date: 20161212
  Transmission Date: 20170207
  Serious: Yes (Hospitalization)
  Sender: FDA-Public Use
  Company Number: FR-SA-2016SA223564

PATIENT
  Sex: Female
  Weight: 2.03 kg

DRUGS (5)
  1. CORTANCYL [Suspect]
     Active Substance: PREDNISONE
     Route: 064
  2. ARAVA [Suspect]
     Active Substance: LEFLUNOMIDE
     Route: 064
     Dates: start: 20160125, end: 20160125
  3. LEVOTHYROX [Suspect]
     Active Substance: LEVOTHYROXINE
     Route: 064
  4. SPECIAFOLDINE [Suspect]
     Active Substance: FOLIC ACID
     Route: 064
     Dates: start: 20160224
  5. QUESTRAN [Suspect]
     Active Substance: CHOLESTYRAMINE
     Route: 064
     Dates: start: 20160224

REACTIONS (3)
  - Premature baby [Unknown]
  - Foetal exposure during pregnancy [Unknown]
  - Foetal heart rate abnormal [Unknown]
